FAERS Safety Report 9559292 (Version 3)
Quarter: 2013Q4

REPORT INFORMATION
  Report Type: Report from Study
  Country: AU (occurrence: AU)
  Receive Date: 20130927
  Receipt Date: 20131008
  Transmission Date: 20140711
  Serious: Yes (Hospitalization, Disabling, Other)
  Sender: FDA-Public Use
  Company Number: PHHY2013AU051133

PATIENT
  Age: 33 Year
  Sex: Female

DRUGS (2)
  1. CLOZARIL [Suspect]
     Dosage: 125 MG
     Dates: start: 20130503, end: 20130510
  2. CLOZARIL [Suspect]
     Dosage: UNK
     Dates: start: 20130711

REACTIONS (8)
  - Respiratory tract infection [Unknown]
  - Hepatitis C [Recovering/Resolving]
  - Cytomegalovirus infection [Unknown]
  - Urinary tract infection [Unknown]
  - Antipsychotic drug level decreased [Recovered/Resolved]
  - Malaise [Unknown]
  - Blood glucose increased [Recovered/Resolved]
  - White blood cell count decreased [Unknown]
